FAERS Safety Report 20933913 (Version 2)
Quarter: 2022Q2

REPORT INFORMATION
  Report Type: Spontaneous
  Country: US (occurrence: US)
  Receive Date: 20220608
  Receipt Date: 20220627
  Transmission Date: 20220720
  Serious: Yes (Hospitalization, Other)
  Sender: FDA-Public Use
  Company Number: US-BRISTOL-MYERS SQUIBB COMPANY-2022-049286

PATIENT
  Age: 86 Year
  Sex: Male

DRUGS (2)
  1. IDHIFA [Suspect]
     Active Substance: ENASIDENIB MESYLATE
     Indication: Chronic lymphocytic leukaemia refractory
     Route: 048
     Dates: start: 20220105
  2. IDHIFA [Suspect]
     Active Substance: ENASIDENIB MESYLATE
     Indication: Myeloproliferative neoplasm

REACTIONS (3)
  - Internal haemorrhage [Unknown]
  - Intentional product use issue [Unknown]
  - Colon cancer [Unknown]

NARRATIVE: CASE EVENT DATE: 20220519
